FAERS Safety Report 21986084 (Version 1)
Quarter: 2023Q1

REPORT INFORMATION
  Report Type: Spontaneous
  Country: US (occurrence: None)
  Receive Date: 20230209
  Receipt Date: 20230209
  Transmission Date: 20230418
  Serious: Yes (Hospitalization)
  Sender: FDA-Public Use
  Company Number: None

PATIENT
  Age: 65 Year
  Sex: Female

DRUGS (1)
  1. ENVARSUS XR [Suspect]
     Active Substance: TACROLIMUS
     Indication: Pancreas transplant
     Dosage: FREQUENCY : DAILY;?
     Route: 048
     Dates: start: 202103

REACTIONS (1)
  - Pyrexia [None]

NARRATIVE: CASE EVENT DATE: 20230130
